FAERS Safety Report 23915757 (Version 3)
Quarter: 2024Q3

REPORT INFORMATION
  Report Type: Report from Study
  Country: CA (occurrence: CA)
  Receive Date: 20240529
  Receipt Date: 20240725
  Transmission Date: 20241017
  Serious: Yes (Hospitalization, Other)
  Sender: GLAXOSMITHKLINE
  Company Number: CA-GLAXOSMITHKLINE-CA2023AMR118025

PATIENT

DRUGS (4)
  1. MEPOLIZUMAB [Suspect]
     Active Substance: MEPOLIZUMAB
     Indication: Asthma
     Dosage: 100 MG, Q4W
     Route: 058
     Dates: start: 20210329
  2. MEPOLIZUMAB [Suspect]
     Active Substance: MEPOLIZUMAB
     Indication: Asthma
     Dosage: 100 MG, Q4W
     Route: 058
  3. MEPOLIZUMAB [Suspect]
     Active Substance: MEPOLIZUMAB
     Indication: Asthma
     Dosage: 100 MG, Q4W
     Route: 058
  4. MEPOLIZUMAB [Suspect]
     Active Substance: MEPOLIZUMAB
     Indication: Asthma
     Dosage: 100 MG, Q4W
     Route: 058

REACTIONS (12)
  - Respiratory disorder [Recovered/Resolved]
  - Hyperhidrosis [Unknown]
  - Chills [Unknown]
  - Oxygen saturation decreased [Recovered/Resolved]
  - Pneumonia bacterial [Unknown]
  - Oropharyngeal pain [Recovered/Resolved]
  - SARS-CoV-2 test positive [Not Recovered/Not Resolved]
  - Dyspnoea [Recovered/Resolved]
  - Productive cough [Recovered/Resolved]
  - Weight increased [Unknown]
  - Nasopharyngitis [Unknown]
  - Dyspnoea exertional [Unknown]

NARRATIVE: CASE EVENT DATE: 20230801
